FAERS Safety Report 16900447 (Version 4)
Quarter: 2020Q1

REPORT INFORMATION
  Report Type: Spontaneous
  Country: US (occurrence: US)
  Receive Date: 20191009
  Receipt Date: 20200310
  Transmission Date: 20200409
  Serious: No
  Sender: FDA-Public Use
  Company Number: US-PFIZER INC-2019436539

PATIENT
  Age: 64 Year
  Sex: Female

DRUGS (2)
  1. PREMPHASE [Suspect]
     Active Substance: ESTROGENS, CONJUGATED\MEDROXYPROGESTERONE ACETATE
     Indication: MENOPAUSE
     Dosage: UNK, 1X/DAY
  2. PROGESTERONE. [Concomitant]
     Active Substance: PROGESTERONE
     Dosage: 100 MG, UNK

REACTIONS (11)
  - Pain in extremity [Unknown]
  - Insomnia [Unknown]
  - Memory impairment [Unknown]
  - Depressed mood [Unknown]
  - Product dose omission [Unknown]
  - Decreased appetite [Unknown]
  - Weight gain poor [Unknown]
  - Weight decreased [Unknown]
  - Dysphonia [Unknown]
  - Malaise [Unknown]
  - Hypoacusis [Unknown]
